FAERS Safety Report 21751407 (Version 14)
Quarter: 2024Q3

REPORT INFORMATION
  Report Type: Report from Study
  Country: US (occurrence: US)
  Receive Date: 20221220
  Receipt Date: 20240926
  Transmission Date: 20241016
  Serious: Yes (Other)
  Sender: GLAXOSMITHKLINE
  Company Number: US-GLAXOSMITHKLINE-US2022AMR187250

PATIENT

DRUGS (2)
  1. NIRAPARIB [Suspect]
     Active Substance: NIRAPARIB
     Indication: Ovarian cancer
     Dosage: 200 MG, QD
     Dates: start: 20221207
  2. NIRAPARIB [Suspect]
     Active Substance: NIRAPARIB
     Indication: Ovarian cancer
     Dosage: 200 MG, QD

REACTIONS (16)
  - Neuropathy peripheral [Not Recovered/Not Resolved]
  - Insomnia [Recovered/Resolved]
  - Fatigue [Not Recovered/Not Resolved]
  - Constipation [Not Recovered/Not Resolved]
  - Diarrhoea [Recovering/Resolving]
  - Decreased activity [Not Recovered/Not Resolved]
  - Pruritus [Not Recovered/Not Resolved]
  - Blood glucose increased [Not Recovered/Not Resolved]
  - Back pain [Recovering/Resolving]
  - Influenza [Recovered/Resolved]
  - Coronavirus infection [Recovered/Resolved]
  - Sinusitis [Recovered/Resolved]
  - Neck pain [Not Recovered/Not Resolved]
  - Arthritis [Unknown]
  - Carbohydrate antigen 125 increased [Not Recovered/Not Resolved]
  - Product dose omission issue [Unknown]

NARRATIVE: CASE EVENT DATE: 20221201
